FAERS Safety Report 24849514 (Version 1)
Quarter: 2025Q1

REPORT INFORMATION
  Report Type: Spontaneous
  Country: JP (occurrence: JP)
  Receive Date: 20250116
  Receipt Date: 20250116
  Transmission Date: 20250409
  Serious: Yes (Other)
  Sender: SANOFI AVENTIS
  Company Number: JP-SA-2025SA012280

PATIENT
  Age: 40 Year
  Sex: Female

DRUGS (1)
  1. OXALIPLATIN [Suspect]
     Active Substance: OXALIPLATIN
     Route: 042

REACTIONS (4)
  - Oesophageal stenosis [Unknown]
  - Weight decreased [Unknown]
  - Pain [Unknown]
  - Maternal exposure during pregnancy [Unknown]
